FAERS Safety Report 4910765-8 (Version None)
Quarter: 2006Q1

REPORT INFORMATION
  Report Type: 
  Country: None (occurrence: None)
  Receive Date: 20060214
  Receipt Date: 20060203
  Transmission Date: 20060701
  Serious: Yes (Hospitalization)
  Sender: FDA-Public Use
  Company Number: US-JNJFOC-20060202626

PATIENT
  Sex: Male
  Weight: 36.29 kg

DRUGS (3)
  1. MOTRIN [Suspect]
     Indication: DRUG USE FOR UNKNOWN INDICATION
  2. CHILDREN'S BENADRYL [Suspect]
     Indication: DRUG USE FOR UNKNOWN INDICATION
     Dosage: ^BY THE BOTTLE^
     Route: 048
  3. CHILDRENS VITAMINS [Concomitant]

REACTIONS (3)
  - HALLUCINATION, VISUAL [None]
  - MYDRIASIS [None]
  - PYREXIA [None]
